FAERS Safety Report 6753269-2 (Version None)
Quarter: 2010Q2

REPORT INFORMATION
  Report Type: 
  Country: None (occurrence: None)
  Receive Date: 20100526
  Receipt Date: 20100226
  Transmission Date: 20101027
  Serious: No
  Sender: FDA-Public Use
  Company Number: 305105

PATIENT
  Sex: Female

DRUGS (1)
  1. VICTOZA [Suspect]
     Indication: DIABETES MELLITUS
     Dosage: 0.6 MG, UNK, SUBCUTANEOUS, 0.8 MG, SINGLE, SUBCUTANEOUS
     Route: 058
     Dates: start: 20100225, end: 20100225

REACTIONS (3)
  - BLOOD GLUCOSE DECREASED [None]
  - DIZZINESS [None]
  - INCORRECT DOSE ADMINISTERED [None]
